FAERS Safety Report 21126751 (Version 3)
Quarter: 2023Q2

REPORT INFORMATION
  Report Type: Spontaneous
  Country: DE (occurrence: DE)
  Receive Date: 20220725
  Receipt Date: 20230503
  Transmission Date: 20230722
  Serious: Yes (Other)
  Sender: FDA-Public Use
  Company Number: DE-NOVARTISPH-NVSC2022DE168065

PATIENT
  Age: 59 Year
  Sex: Female

DRUGS (9)
  1. METHOTREXATE [Suspect]
     Active Substance: METHOTREXATE
     Indication: Rheumatoid arthritis
     Dosage: 15 MG, QW
     Route: 065
  2. METHOTREXATE [Suspect]
     Active Substance: METHOTREXATE
     Dosage: 17.5 MG, QW (START DATE TEXT: BEFORE 31-JUL-2015, STOP DATE TEXT: BETWEEN 7 JAN 2016 AND 1 JUL 2016)
     Route: 065
  3. METHOTREXATE [Suspect]
     Active Substance: METHOTREXATE
     Dosage: 15 MG (START DATE TEXT: BETWEEN 1-JUL-2016 AND 5-JAN-2017, STOP DATE TEXT: BETWEEN 4-JUL-2017 AND 16
     Route: 065
  4. METHOTREXATE [Suspect]
     Active Substance: METHOTREXATE
     Dosage: 17.5 MG (START DATE TEXT: BETWEEN 7-JAN-2016 AND 1-JUL-2016, STOP DATE TEXT: BETWEEN 1-JUL-2016 AND
     Route: 065
  5. METHOTREXATE [Suspect]
     Active Substance: METHOTREXATE
     Dosage: 10 MG (START DATE TEXT: BETWEEN 3-JAN-2019 AND 3-JUL-2019)
     Route: 065
  6. METHOTREXATE [Suspect]
     Active Substance: METHOTREXATE
     Dosage: 12.5 MG (START DATE TEXT: BETWEEN 4-JUL-2017 AND 16-JAN-2018, STOP DATE TEXT: BETWEEN 3-JAN-2019 AND
     Route: 065
  7. PANTOZOL [Concomitant]
     Active Substance: PANTOPRAZOLE SODIUM
     Indication: Product used for unknown indication
     Dosage: 40 MG
     Route: 065
  8. LYRICA [Concomitant]
     Active Substance: PREGABALIN
     Indication: Product used for unknown indication
     Dosage: 50 MG
     Route: 065
  9. VIGANTOL [Concomitant]
     Indication: Product used for unknown indication
     Dosage: 1000 IE
     Route: 065

REACTIONS (3)
  - Rheumatoid arthritis [Not Recovered/Not Resolved]
  - Drug ineffective [Not Recovered/Not Resolved]
  - Osteoarthritis [Unknown]

NARRATIVE: CASE EVENT DATE: 20220622
